FAERS Safety Report 8859969 (Version 2)
Quarter: 2012Q4

REPORT INFORMATION
  Report Type: 
  Country: RU (occurrence: RU)
  Receive Date: 20121025
  Receipt Date: 20121120
  Transmission Date: 20130627
  Serious: Yes (Hospitalization)
  Sender: FDA-Public Use
  Company Number: RU-PFIZER INC-2012263273

PATIENT
  Age: 76 Year
  Sex: Female

DRUGS (1)
  1. LYRICA [Suspect]
     Dosage: 300 mg, single dose taken
     Route: 048
     Dates: start: 201210, end: 201210

REACTIONS (2)
  - Convulsion [Recovered/Resolved]
  - Feeling abnormal [Recovered/Resolved]
